FAERS Safety Report 13131143 (Version 1)
Quarter: 2017Q1

REPORT INFORMATION
  Report Type: Spontaneous
  Country: CN (occurrence: CN)
  Receive Date: 20170119
  Receipt Date: 20170119
  Transmission Date: 20170428
  Serious: Yes (Hospitalization, Other)
  Sender: FDA-Public Use
  Company Number: CN-PFIZER INC-2015317304

PATIENT
  Age: 58 Year
  Sex: Male

DRUGS (7)
  1. PANTOLOC [Suspect]
     Active Substance: PANTOPRAZOLE SODIUM
     Indication: ANTACID THERAPY
     Dosage: 80 MG, BID
     Route: 042
     Dates: start: 201508, end: 201508
  2. POLYENE PHOSPHATIDYLCHOLINE [Concomitant]
     Active Substance: PHOSPHOLIPID
     Indication: PROPHYLAXIS
     Dosage: UNK
     Dates: start: 201508, end: 201508
  3. METHYCOBAL [Concomitant]
     Active Substance: METHYLCOBALAMIN
     Indication: NEUROPATHY PERIPHERAL
     Dosage: UNK
     Route: 016
     Dates: start: 201508, end: 201508
  4. MAGNESIUM ISOGLYCYRRHIZINATE [Concomitant]
     Active Substance: MAGNESIUM ISOGLYCYRRHIZINATE
     Indication: PROPHYLAXIS
     Dosage: UNK
     Dates: start: 201508, end: 201508
  5. ADEMETIONINE 1,4-BUTANEDISULFONATE [Concomitant]
     Indication: PROPHYLAXIS
     Dosage: UNK
  6. SOMATOSTATIN [Concomitant]
     Active Substance: SOMATOSTATIN
     Indication: ANGIOPATHY
     Dosage: UNK
     Dates: start: 201508, end: 201508
  7. ALANYL GLUTAMINE [Concomitant]
     Active Substance: ALANYL GLUTAMINE
     Indication: PROPHYLAXIS
     Dosage: UNK
     Dates: start: 201508, end: 201508

REACTIONS (5)
  - Haemorrhagic anaemia [Unknown]
  - Vision blurred [Unknown]
  - Shock haemorrhagic [Unknown]
  - Gastrointestinal haemorrhage [Unknown]
  - Alcoholic liver disease [Unknown]

NARRATIVE: CASE EVENT DATE: 20150824
